FAERS Safety Report 15104291 (Version 3)
Quarter: 2025Q4

REPORT INFORMATION
  Report Type: Spontaneous
  Country: AU (occurrence: AU)
  Receive Date: 20180703
  Receipt Date: 20251016
  Transmission Date: 20260118
  Serious: Yes (Other)
  Sender: JOHNSON AND JOHNSON
  Company Number: AU-JNJFOC-20180635149

PATIENT
  Age: 31 Year
  Sex: Female

DRUGS (1)
  1. INFLIXIMAB [Suspect]
     Active Substance: INFLIXIMAB
     Indication: Colitis ulcerative
     Route: 041

REACTIONS (10)
  - Premature labour [Recovered/Resolved]
  - Colitis ulcerative [Recovered/Resolved]
  - Pneumonia [Recovering/Resolving]
  - Leukopenia [Unknown]
  - HELLP syndrome [Recovered/Resolved]
  - Anaemia [Unknown]
  - Drug level below therapeutic [Unknown]
  - Exposure during pregnancy [Recovered/Resolved]
  - Drug ineffective [Unknown]
  - Hypoalbuminaemia [Unknown]
